FAERS Safety Report 23352837 (Version 1)
Quarter: 2023Q4

REPORT INFORMATION
  Report Type: Spontaneous
  Country: GB (occurrence: GB)
  Receive Date: 20231230
  Receipt Date: 20231230
  Transmission Date: 20240109
  Serious: Yes (Death, Other)
  Sender: FDA-Public Use
  Company Number: None

PATIENT
  Weight: 9 kg

DRUGS (1)
  1. CLINDAMYCIN [Suspect]
     Active Substance: CLINDAMYCIN
     Indication: Streptococcal sepsis
     Route: 065
     Dates: start: 20230305

REACTIONS (2)
  - Death [Fatal]
  - Medication error [Unknown]

NARRATIVE: CASE EVENT DATE: 20230301
